FAERS Safety Report 4909324-2 (Version None)
Quarter: 2006Q1

REPORT INFORMATION
  Report Type: 
  Country: None (occurrence: None)
  Receive Date: 20060213
  Receipt Date: 20060120
  Transmission Date: 20060701
  Serious: Yes (Hospitalization, Other)
  Sender: FDA-Public Use
  Company Number: 2005-US-00301

PATIENT
  Age: 44 Year
  Sex: Male
  Weight: 61.4 kg

DRUGS (6)
  1. WELLBUTRIN [Suspect]
     Dosage: 300MG PER DAY
     Route: 048
     Dates: start: 20050107, end: 20050401
  2. CLOZAPINE [Suspect]
     Indication: SCHIZOPHRENIA
     Dosage: 700MG PER DAY
     Route: 048
     Dates: start: 20040901
  3. QUETIAPINE [Concomitant]
     Dosage: 300MG PER DAY
     Dates: start: 20050502
  4. PAROXETINE HCL [Concomitant]
     Route: 048
     Dates: start: 20041008
  5. SIMVASTATIN [Concomitant]
     Dosage: 250MG PER DAY
     Dates: start: 20040722
  6. DILANTIN [Concomitant]

REACTIONS (3)
  - CONVULSION [None]
  - DRUG INTERACTION [None]
  - MENTAL STATUS CHANGES [None]
